FAERS Safety Report 6914008-5 (Version None)
Quarter: 2010Q3

REPORT INFORMATION
  Report Type: 
  Country: None (occurrence: None)
  Receive Date: 20100809
  Receipt Date: 20100727
  Transmission Date: 20110219
  Serious: Yes (Other)
  Sender: FDA-Public Use
  Company Number: PHHY2010DE33171

PATIENT
  Sex: Female

DRUGS (1)
  1. EXFORGE HCT [Suspect]
     Dosage: 160/5/12.5 MG/ DAY
     Route: 048
     Dates: start: 20100226, end: 20100419

REACTIONS (2)
  - ATRIAL FIBRILLATION [None]
  - HYPERTENSIVE CRISIS [None]
